FAERS Safety Report 24749127 (Version 1)
Quarter: 2024Q4

REPORT INFORMATION
  Report Type: Spontaneous
  Country: DE (occurrence: DE)
  Receive Date: 20241218
  Receipt Date: 20241218
  Transmission Date: 20250114
  Serious: Yes (Hospitalization)
  Sender: SANDOZ
  Company Number: DE-ROCHE-3575573

PATIENT
  Age: 46 Year
  Sex: Female
  Weight: 73 kg

DRUGS (27)
  1. CYCLOPHOSPHAMIDE [Suspect]
     Active Substance: CYCLOPHOSPHAMIDE
     Indication: Diffuse large B-cell lymphoma
     Dosage: 1350 MG, TIW
     Route: 042
     Dates: start: 20240424
  2. DOXORUBICIN [Suspect]
     Active Substance: DOXORUBICIN
     Indication: Diffuse large B-cell lymphoma
     Dosage: 45 MG, TIW, ON 15/MAY/2024, SHE RECEIVED MOST RECENT DOSE OF DOXORUBICIN 90 MG PRIOR TO SAE.
     Route: 042
     Dates: start: 20240424
  3. PREDNISOLONE [Suspect]
     Active Substance: PREDNISOLONE
     Indication: Diffuse large B-cell lymphoma
     Dosage: 100 MG, TIW
     Route: 048
     Dates: start: 20240423
  4. POLATUZUMAB VEDOTIN [Suspect]
     Active Substance: POLATUZUMAB VEDOTIN
     Indication: Diffuse large B-cell lymphoma
     Dosage: 102.2 MG, TIW
     Route: 042
     Dates: start: 20240424
  5. RITUXIMAB [Suspect]
     Active Substance: RITUXIMAB
     Indication: Diffuse large B-cell lymphoma
     Dosage: 675.000MG TIW
     Route: 042
     Dates: start: 20240423
  6. ACYCLOVIR [Concomitant]
     Active Substance: ACYCLOVIR
     Indication: Product used for unknown indication
     Dosage: 500 MG
     Route: 042
     Dates: start: 20240503, end: 20240510
  7. ACYCLOVIR [Concomitant]
     Active Substance: ACYCLOVIR
     Indication: Product used for unknown indication
     Dosage: 400.000MG
     Route: 048
     Dates: start: 20240423
  8. ALLOPURINOL [Concomitant]
     Active Substance: ALLOPURINOL
     Indication: Product used for unknown indication
     Dosage: 300.000MG QD
     Route: 065
  9. BISOPROLOL [Concomitant]
     Active Substance: BISOPROLOL
     Indication: Hypertension
     Dosage: 2.500MG QD
     Route: 048
  10. COLUMVI [Concomitant]
     Active Substance: GLOFITAMAB-GXBM
     Indication: Diffuse large B-cell lymphoma
     Dosage: START DATE OF MOST RECENT DOSE OF STUDY DRUGPRIOR TO AE:: 28/MAY/2024: 10 MG
     Route: 042
     Dates: start: 20240521
  11. DEXAMETHASONE [Concomitant]
     Active Substance: DEXAMETHASONE
     Indication: Product used for unknown indication
     Dosage: 20.000MG
     Route: 042
     Dates: start: 20240521, end: 20240521
  12. DEXAMETHASONE [Concomitant]
     Active Substance: DEXAMETHASONE
     Dosage: 20.000MG
     Route: 042
     Dates: start: 20240528, end: 20240528
  13. FILGRASTIM [Concomitant]
     Active Substance: FILGRASTIM
     Indication: Leukopenia
     Dosage: QD
     Route: 058
     Dates: start: 20240508, end: 20240509
  14. FOLIC ACID [Concomitant]
     Active Substance: FOLIC ACID
     Indication: Folate deficiency
     Dosage: 5.000MG
     Route: 048
     Dates: start: 20240430
  15. GLOFITAMAB [Concomitant]
     Active Substance: GLOFITAMAB
     Indication: Diffuse large B-cell lymphoma
     Dosage: 2.5 MG, TIW
     Route: 042
     Dates: start: 20240521
  16. Kalinor [Concomitant]
     Indication: Product used for unknown indication
     Dosage: 40 OTHER
     Route: 065
     Dates: start: 20240531, end: 20240605
  17. GRANISETRON HYDROCHLORIDE [Concomitant]
     Active Substance: GRANISETRON HYDROCHLORIDE
     Indication: Product used for unknown indication
     Dosage: 1.000MG
     Route: 042
     Dates: start: 20240515
  18. NOVALGIN (METAMIZOLE SODIUM) [Concomitant]
     Active Substance: METAMIZOLE SODIUM
     Indication: Febrile neutropenia
     Dosage: 40GTT
     Route: 048
     Dates: start: 20240505, end: 20240505
  19. ACETAMINOPHEN [Concomitant]
     Active Substance: ACETAMINOPHEN
     Indication: Febrile neutropenia
     Dosage: 1.000G QD
     Route: 048
     Dates: start: 20240514, end: 20240515
  20. ACETAMINOPHEN [Concomitant]
     Active Substance: ACETAMINOPHEN
     Dosage: 1000.000MG
     Route: 042
     Dates: start: 20240503, end: 20240503
  21. ACETAMINOPHEN [Concomitant]
     Active Substance: ACETAMINOPHEN
     Dosage: 1000.000MG
     Route: 048
     Dates: start: 20240521, end: 20240528
  22. PEGFILGRASTIM [Concomitant]
     Active Substance: PEGFILGRASTIM
     Indication: Product used for unknown indication
     Dosage: 6.000MG
     Route: 058
     Dates: start: 20240518, end: 20240518
  23. POTASSIUM [Concomitant]
     Active Substance: POTASSIUM
     Dosage: QD
     Route: 048
     Dates: start: 20240506, end: 20240509
  24. POTASSIUM [Concomitant]
     Active Substance: POTASSIUM
     Indication: Hypokalaemia
     Dosage: UNK
     Route: 048
     Dates: start: 20240405, end: 20240505
  25. CLEMASTINE FUMARATE [Concomitant]
     Active Substance: CLEMASTINE FUMARATE
     Indication: Product used for unknown indication
     Dosage: 2.000MG QD
     Route: 042
     Dates: start: 20240514, end: 20240515
  26. CLEMASTINE FUMARATE [Concomitant]
     Active Substance: CLEMASTINE FUMARATE
     Dosage: 2.000MG
     Route: 042
     Dates: start: 20240521, end: 20240528
  27. TORSEMIDE [Concomitant]
     Active Substance: TORSEMIDE
     Indication: Oedema peripheral
     Dosage: 5 MG, QD
     Route: 048
     Dates: start: 20240423, end: 20240430

REACTIONS (1)
  - Pyrexia [Recovered/Resolved]

NARRATIVE: CASE EVENT DATE: 20240530
